FAERS Safety Report 8150542-0 (Version None)
Quarter: 2012Q1

REPORT INFORMATION
  Report Type: 
  Country: None (occurrence: None)
  Receive Date: 20120220
  Receipt Date: 20120206
  Transmission Date: 20120608
  Serious: Yes (Death)
  Sender: FDA-Public Use
  Company Number: FR-ASTELLAS-2012US000659

PATIENT
  Sex: Female
  Weight: 70 kg

DRUGS (9)
  1. VANCOMYCIN [Concomitant]
     Indication: SEPSIS
     Dosage: UNK
     Route: 065
     Dates: start: 20111110, end: 20111121
  2. POTASSIUM CHLORIDE [Concomitant]
     Indication: SEPTIC SHOCK
     Dosage: UNK
     Route: 065
     Dates: start: 20111110, end: 20111121
  3. AMBISOME [Suspect]
     Indication: BRONCHOPULMONARY ASPERGILLOSIS
     Dosage: UNK
     Route: 065
     Dates: start: 20111118, end: 20111121
  4. NEXIUM [Concomitant]
     Indication: PROPHYLAXIS
     Dosage: UNK
     Route: 065
     Dates: start: 20111110, end: 20111121
  5. NOREPINEPHRINE BITARTRATE [Concomitant]
     Indication: SEPTIC SHOCK
     Dosage: UNK
     Route: 065
     Dates: start: 20111110, end: 20111121
  6. HYDROCORTISONE [Concomitant]
     Indication: SEPTIC SHOCK
     Dosage: UNK
     Route: 065
     Dates: start: 20111110, end: 20111121
  7. CLINDAMYCIN HCL [Concomitant]
     Indication: SEPSIS
     Dosage: UNK
     Route: 065
     Dates: start: 20111116, end: 20111121
  8. ZOVIRAX [Concomitant]
     Indication: HERPES VIRUS INFECTION
     Dosage: UNK
     Route: 065
     Dates: start: 20111110, end: 20111121
  9. ALBUMIN (HUMAN) [Concomitant]
     Indication: SEPTIC SHOCK
     Dosage: UNK
     Route: 065
     Dates: start: 20111110, end: 20111121

REACTIONS (2)
  - DISEASE PROGRESSION [None]
  - TREATMENT FAILURE [None]
